FAERS Safety Report 12088199 (Version 1)
Quarter: 2016Q1

REPORT INFORMATION
  Report Type: Spontaneous
  Country: US (occurrence: None)
  Receive Date: 20160216
  Receipt Date: 20160216
  Transmission Date: 20160526
  Serious: No
  Sender: FDA-Public Use
  Company Number: None

PATIENT
  Age: 64 Year
  Sex: Female

DRUGS (1)
  1. PREDNISONE. [Suspect]
     Active Substance: PREDNISONE

REACTIONS (6)
  - Weight decreased [None]
  - Joint swelling [None]
  - Nasopharyngitis [None]
  - Blood glucose decreased [None]
  - Inflammation [None]
  - Heart rate increased [None]
